FAERS Safety Report 18654080 (Version 1)
Quarter: 2020Q4

REPORT INFORMATION
  Report Type: Spontaneous
  Country: DK (occurrence: DK)
  Receive Date: 20201223
  Receipt Date: 20201223
  Transmission Date: 20210114
  Serious: Yes (Hospitalization)
  Sender: FDA-Public Use
  Company Number: DK-TEVA-2020-DK-1860115

PATIENT
  Age: 89 Year
  Sex: Male

DRUGS (2)
  1. DULCOLAX NOS [Suspect]
     Active Substance: BISACODYL OR DOCUSATE SODIUM
     Indication: LAXATIVE SUPPORTIVE CARE
     Dosage: UNIT DOSE : 10 MG
     Route: 048
     Dates: start: 20201030, end: 20201117
  2. RELTEBON DEPOT [Suspect]
     Active Substance: OXYCODONE HYDROCHLORIDE
     Indication: PAIN
     Dosage: UNIT DOSE : 5 MG P.N. MAXIMUM 4 TIMES DAILY
     Route: 048
     Dates: start: 20201029, end: 20201122

REACTIONS (2)
  - Chronic kidney disease [Not Recovered/Not Resolved]
  - Nausea [Unknown]

NARRATIVE: CASE EVENT DATE: 20201117
